FAERS Safety Report 8496103-5 (Version None)
Quarter: 2012Q3

REPORT INFORMATION
  Report Type: 
  Country: None (occurrence: None)
  Receive Date: 20120709
  Receipt Date: 20120702
  Transmission Date: 20120928
  Serious: Yes (Hospitalization, Disabling, Other)
  Sender: FDA-Public Use
  Company Number: US-MSD-1203USA01937

PATIENT

DRUGS (4)
  1. MK-9278 [Concomitant]
     Indication: ROUTINE HEALTH MAINTENANCE
     Dosage: 1 DF, QD
  2. FOSAMAX [Suspect]
     Indication: ROUTINE HEALTH MAINTENANCE
     Dosage: 70 MG, UNK
     Route: 048
     Dates: start: 20080401
  3. FOSAMAX [Suspect]
     Indication: OSTEOPOROSIS
     Dosage: 70 MG, UNK
     Route: 048
     Dates: start: 20080422
  4. FOSAMAX [Suspect]
     Dosage: 70 MG, UNK
     Route: 048
     Dates: start: 20080729, end: 20100902

REACTIONS (38)
  - ANKLE FRACTURE [None]
  - OSTEOPOROTIC FRACTURE [None]
  - OSTEOARTHRITIS [None]
  - CATARACT [None]
  - BLADDER DISORDER [None]
  - GASTROOESOPHAGEAL REFLUX DISEASE [None]
  - DEPRESSION [None]
  - TOOTH DISORDER [None]
  - OBSTRUCTION [None]
  - ECCHYMOSIS [None]
  - BURSITIS [None]
  - SCIATICA [None]
  - RHEUMATOID ARTHRITIS [None]
  - ROTATOR CUFF SYNDROME [None]
  - OSTEOPENIA [None]
  - SNORING [None]
  - ARTHRITIS [None]
  - IATROGENIC INJURY [None]
  - UMBILICAL HERNIA [None]
  - OSTEOMYELITIS [None]
  - MUSCULOSKELETAL CHEST PAIN [None]
  - ANXIETY [None]
  - HAEMORRHAGIC ANAEMIA [None]
  - FALL [None]
  - OEDEMA [None]
  - IMPAIRED HEALING [None]
  - ONYCHOMYCOSIS [None]
  - FRACTURE NONUNION [None]
  - MUSCULOSKELETAL PAIN [None]
  - FEMUR FRACTURE [None]
  - JAW FRACTURE [None]
  - RADICULAR PAIN [None]
  - GAIT DISTURBANCE [None]
  - PARAESTHESIA [None]
  - CONSTIPATION [None]
  - BONE PAIN [None]
  - STRESS FRACTURE [None]
  - FOOT FRACTURE [None]
